FAERS Safety Report 10094555 (Version 2)
Quarter: 2014Q2

REPORT INFORMATION
  Report Type: Spontaneous
  Country: US (occurrence: US)
  Receive Date: 20140422
  Receipt Date: 20140422
  Transmission Date: 20141212
  Serious: No
  Sender: FDA-Public Use
  Company Number: US-SANOFI-AVENTIS-2013SA018183

PATIENT
  Age: 82 Year
  Sex: Male
  Weight: 65.77 kg

DRUGS (1)
  1. ALLEGRA D [Suspect]
     Indication: NASAL CONGESTION
     Dosage: THERAPY START DATE - YEARS AGO
     Route: 048

REACTIONS (1)
  - Medication residue present [Unknown]
